FAERS Safety Report 4850898-8 (Version None)
Quarter: 2005Q4

REPORT INFORMATION
  Report Type: 
  Country: None (occurrence: None)
  Receive Date: 20051212
  Receipt Date: 20051109
  Transmission Date: 20060501
  Serious: Yes (Hospitalization)
  Sender: FDA-Public Use
  Company Number: 2005JP002141

PATIENT
  Age: 13 Year
  Sex: Male
  Weight: 55 kg

DRUGS (8)
  1. CEFAZOLIN [Suspect]
     Indication: PROPHYLAXIS
     Dosage: 1G TWICE PER DAY
     Route: 042
     Dates: start: 20051031, end: 20051101
  2. LOXONIN [Suspect]
     Indication: PAIN
     Dosage: 60MG THREE TIMES PER DAY
     Route: 048
     Dates: start: 20051101, end: 20051102
  3. VOLTAREN [Suspect]
     Indication: PAIN
     Dosage: 50MG PER DAY
     Route: 054
     Dates: start: 20051031, end: 20051101
  4. VECURONIUM BROMIDE [Suspect]
     Dosage: 5MG PER DAY
     Route: 042
     Dates: start: 20051031, end: 20051031
  5. ISOFLURANE [Suspect]
     Dosage: 40ML PER DAY
     Route: 055
     Dates: start: 20051031, end: 20051031
  6. DIPRIVAN [Suspect]
     Dosage: 120MG PER DAY
     Route: 042
     Dates: start: 20051031, end: 20051031
  7. ZYRTEC [Concomitant]
     Dates: start: 20051030
  8. MUCOSTA [Concomitant]
     Dates: start: 20051101, end: 20051102

REACTIONS (6)
  - ALANINE AMINOTRANSFERASE INCREASED [None]
  - ASPARTATE AMINOTRANSFERASE INCREASED [None]
  - BLOOD CREATINE PHOSPHOKINASE INCREASED [None]
  - BLOOD LACTATE DEHYDROGENASE INCREASED [None]
  - HEPATIC FUNCTION ABNORMAL [None]
  - MALAISE [None]
